FAERS Safety Report 4307993-1 (Version None)
Quarter: 2004Q1

REPORT INFORMATION
  Report Type: 
  Country: None (occurrence: None)
  Receive Date: 20040226
  Receipt Date: 20030806
  Transmission Date: 20041129
  Serious: Yes (Hospitalization, Disabling)
  Sender: FDA-Public Use
  Company Number: 2003168720US

PATIENT
  Age: 76 Year
  Sex: Female

DRUGS (1)
  1. CELEBREX [Suspect]
     Indication: OSTEOARTHRITIS
     Dosage: UNK, UNK; ORAL
     Route: 048

REACTIONS (5)
  - ARTHRALGIA [None]
  - DEHYDRATION [None]
  - INFARCTION [None]
  - MALAISE [None]
  - VASCULITIS [None]
